FAERS Safety Report 9375528 (Version 2)
Quarter: 2013Q3

REPORT INFORMATION
  Report Type: Spontaneous
  Country: US (occurrence: US)
  Receive Date: 20130628
  Receipt Date: 20130801
  Transmission Date: 20140515
  Serious: Yes (Other)
  Sender: FDA-Public Use
  Company Number: PHEH2013US013904

PATIENT
  Sex: Female

DRUGS (3)
  1. EXELON PATCH [Suspect]
     Dosage: 9.5 MG/ 24 HOURS
     Route: 062
  2. BENICAR [Concomitant]
     Dosage: UNK UKN, UNK
  3. MIRABEGRON [Concomitant]
     Dosage: UNK UKN, UNK

REACTIONS (2)
  - Neoplasm malignant [Unknown]
  - Malaise [Unknown]
